FAERS Safety Report 6433124-8 (Version None)
Quarter: 2009Q4

REPORT INFORMATION
  Report Type: 
  Country: None (occurrence: None)
  Receive Date: 20091109
  Receipt Date: 20091028
  Transmission Date: 20100525
  Serious: Yes (Hospitalization)
  Sender: FDA-Public Use
  Company Number: JP-PFIZER INC-2009290873

PATIENT
  Age: 22 Year
  Sex: Female

DRUGS (1)
  1. ZITHROMAC SR [Suspect]
     Dosage: 2 G, 1X/DAY
     Route: 048
     Dates: start: 20091027, end: 20091027

REACTIONS (5)
  - ABDOMINAL PAIN [None]
  - FLATULENCE [None]
  - SUBILEUS [None]
  - VOMITING [None]
  - WHITE BLOOD CELL COUNT INCREASED [None]
